FAERS Safety Report 8909456 (Version 2)
Quarter: 2012Q4

REPORT INFORMATION
  Report Type: 
  Country: IT (occurrence: IT)
  Receive Date: 20121115
  Receipt Date: 20121226
  Transmission Date: 20130627
  Serious: Yes (Other)
  Sender: FDA-Public Use
  Company Number: IT-SANOFI-AVENTIS-2012SA081167

PATIENT
  Age: 78 Year
  Sex: Female

DRUGS (4)
  1. CLEXANE T [Suspect]
     Indication: PULMONARY EMBOLISM
     Route: 058
     Dates: start: 20121004, end: 20121007
  2. PIPERACILLIN SODIUM/TAZOBACTAM SODIUM [Concomitant]
     Indication: DRUG USE FOR UNKNOWN INDICATION
     Route: 065
  3. PANTORC [Concomitant]
     Indication: DRUG USE FOR UNKNOWN INDICATION
     Route: 048
  4. LASIX [Concomitant]
     Indication: DRUG USE FOR UNKNOWN INDICATION
     Route: 065

REACTIONS (2)
  - Duodenal ulcer [Recovered/Resolved]
  - Melaena [Recovered/Resolved]
